FAERS Safety Report 6347615-1 (Version None)
Quarter: 2009Q3

REPORT INFORMATION
  Report Type: 
  Country: None (occurrence: None)
  Receive Date: 20090910
  Receipt Date: 20090813
  Transmission Date: 20100115
  Serious: No
  Sender: FDA-Public Use
  Company Number: US-BAYER-200913400BCC

PATIENT
  Age: 84 Year
  Sex: Female
  Weight: 73 kg

DRUGS (7)
  1. ALEVE (CAPLET) [Suspect]
     Indication: ARTHRITIS
     Dosage: TOTAL DAILY DOSE: 440 MG  UNIT DOSE: 220 MG
     Route: 048
     Dates: start: 20070101
  2. ALEVE (CAPLET) [Suspect]
     Dosage: TOTAL DAILY DOSE: 220 MG  UNIT DOSE: 220 MG
     Route: 048
  3. PLAVIX [Concomitant]
     Route: 065
  4. WALGREEN BRAND ASPIRIN [Concomitant]
     Route: 065
  5. LEXAPRO [Concomitant]
     Route: 065
  6. TYLENOL (CAPLET) [Concomitant]
     Route: 065
  7. CENTRUM SILVER [Concomitant]
     Route: 065

REACTIONS (1)
  - NERVOUSNESS [None]
